FAERS Safety Report 5292430-3 (Version None)
Quarter: 2007Q2

REPORT INFORMATION
  Report Type: 
  Country: None (occurrence: None)
  Receive Date: 20070410
  Receipt Date: 20070329
  Transmission Date: 20071010
  Serious: Yes (Other)
  Sender: FDA-Public Use
  Company Number: US-SHR-US-2007-010957

PATIENT
  Age: 32 Year
  Sex: Female
  Weight: 52.2 kg

DRUGS (2)
  1. MIRENA [Suspect]
     Indication: CONTRACEPTION
     Dosage: 20 A?G/DAY, CONT
     Route: 015
     Dates: start: 20061129
  2. MOTRIN [Concomitant]

REACTIONS (2)
  - ABDOMINAL PAIN [None]
  - CEREBROVASCULAR ACCIDENT [None]
